FAERS Safety Report 5109331-3 (Version None)
Quarter: 2006Q3

REPORT INFORMATION
  Report Type: 
  Country: None (occurrence: None)
  Receive Date: 20060920
  Receipt Date: 20060912
  Transmission Date: 20061208
  Serious: Yes (Other)
  Sender: FDA-Public Use
  Company Number: FR-BRISTOL-MYERS SQUIBB COMPANY-13506571

PATIENT
  Age: 39 Year
  Sex: Male

DRUGS (7)
  1. STAVUDINE [Suspect]
     Dates: end: 20030701
  2. DIDANOSINE [Suspect]
     Dates: end: 20030701
  3. CRIXIVAN [Suspect]
  4. TRACLEER [Suspect]
     Indication: PULMONARY HYPERTENSION
     Dosage: INCREASED FROM 62.5 MG TWICE DAILY
  5. PENTAMIDINE AEROSOL [Concomitant]
     Route: 055
  6. PYRIMETHAMINE TAB [Concomitant]
  7. CLINDAMYCIN [Concomitant]

REACTIONS (3)
  - HYPERLACTACIDAEMIA [None]
  - PANCYTOPENIA [None]
  - PULMONARY HYPERTENSION [None]
